FAERS Safety Report 17452519 (Version 2)
Quarter: 2020Q1

REPORT INFORMATION
  Report Type: Spontaneous
  Country: US (occurrence: US)
  Receive Date: 20200224
  Receipt Date: 20200318
  Transmission Date: 20200409
  Serious: No
  Sender: FDA-Public Use
  Company Number: NVSC2020US050132

PATIENT
  Sex: Male

DRUGS (2)
  1. CEFTRIAXONE. [Suspect]
     Active Substance: CEFTRIAXONE
     Indication: OTITIS MEDIA
     Dosage: 450 MG, TID (VIAL)
     Route: 030
     Dates: start: 20200128
  2. LIDOCAINE. [Suspect]
     Active Substance: LIDOCAINE
     Indication: PRODUCT USED FOR UNKNOWN INDICATION
     Dosage: 1 ML, UNKNOWN
     Route: 065

REACTIONS (2)
  - Incorrect dose administered [Recovering/Resolving]
  - Product selection error [Recovering/Resolving]
